FAERS Safety Report 6376036-0 (Version None)
Quarter: 2009Q3

REPORT INFORMATION
  Report Type: 
  Country: None (occurrence: None)
  Receive Date: 20090924
  Receipt Date: 20090917
  Transmission Date: 20100115
  Serious: Yes (Other)
  Sender: FDA-Public Use
  Company Number: ES-GILEAD-2009-0024320

PATIENT
  Age: 40 Year
  Sex: Female

DRUGS (2)
  1. VIREAD [Suspect]
     Indication: HEPATITIS B
  2. HEPSERA [Suspect]
     Indication: HEPATITIS B

REACTIONS (3)
  - FATIGUE [None]
  - MALAISE [None]
  - NO THERAPEUTIC RESPONSE [None]
